FAERS Safety Report 23674684 (Version 2)
Quarter: 2024Q1

REPORT INFORMATION
  Report Type: Spontaneous
  Country: US (occurrence: US)
  Receive Date: 20240326
  Receipt Date: 20240327
  Transmission Date: 20240410
  Serious: No
  Sender: FDA-Public Use
  Company Number: US-002147023-NVSC2024US064612

PATIENT
  Sex: Male

DRUGS (2)
  1. ENTRESTO [Suspect]
     Active Substance: SACUBITRIL\VALSARTAN
     Indication: Product used for unknown indication
     Dosage: UNK, BID (90-DAY SUPPLY) (97-103MG)
     Route: 048
     Dates: start: 202312
  2. ENTRESTO [Suspect]
     Active Substance: SACUBITRIL\VALSARTAN
     Dosage: UNK (60-DAY SUPPLY)
     Route: 065

REACTIONS (3)
  - Hypertension [Unknown]
  - Product quality issue [Unknown]
  - Drug ineffective [Unknown]
